FAERS Safety Report 23164951 (Version 1)
Quarter: 2023Q4

REPORT INFORMATION
  Report Type: Spontaneous
  Country: US (occurrence: US)
  Receive Date: 20231109
  Receipt Date: 20231109
  Transmission Date: 20240109
  Serious: No
  Sender: FDA-Public Use
  Company Number: US-BAUSCH-BL-2023-016275

PATIENT
  Sex: Female

DRUGS (2)
  1. NASALCROM [Suspect]
     Active Substance: CROMOLYN SODIUM
     Indication: Hypersensitivity
     Route: 045
  2. LORATADINE [Suspect]
     Active Substance: LORATADINE
     Indication: Hypersensitivity
     Route: 065

REACTIONS (5)
  - Somnolence [Unknown]
  - Initial insomnia [Unknown]
  - Fatigue [Recovering/Resolving]
  - Nausea [Unknown]
  - Expired product administered [Unknown]
